FAERS Safety Report 6686265-4 (Version None)
Quarter: 2010Q2

REPORT INFORMATION
  Report Type: 
  Country: None (occurrence: None)
  Receive Date: 20100414
  Receipt Date: 20100406
  Transmission Date: 20101027
  Serious: Yes (Hospitalization)
  Sender: FDA-Public Use
  Company Number: 2010AL002028

PATIENT
  Age: 42 Year
  Sex: Female

DRUGS (3)
  1. METFORMIN HCL [Suspect]
     Dosage: 1500 MG;QD
  2. CITALOPRAM HYDROBROMIDE [Suspect]
     Dosage: 20 MG;QD
  3. VALPROATE SODIUM [Concomitant]

REACTIONS (23)
  - ACUTE RESPIRATORY DISTRESS SYNDROME [None]
  - ALCOHOL POISONING [None]
  - BLOOD CULTURE POSITIVE [None]
  - BLOOD PRESSURE DECREASED [None]
  - BODY TEMPERATURE DECREASED [None]
  - BRONCHOALVEOLAR LAVAGE ABNORMAL [None]
  - COMA SCALE ABNORMAL [None]
  - CONTINUOUS HAEMODIAFILTRATION [None]
  - HEADACHE [None]
  - HEART RATE INCREASED [None]
  - HEPATIC FAILURE [None]
  - HYPERNATRAEMIA [None]
  - INTERNATIONAL NORMALISED RATIO INCREASED [None]
  - LACTIC ACIDOSIS [None]
  - LEUKOCYTOSIS [None]
  - METABOLIC ACIDOSIS [None]
  - NAUSEA [None]
  - PANCREATIC INJURY [None]
  - PNEUMONIA ASPIRATION [None]
  - RENAL FAILURE [None]
  - RHABDOMYOLYSIS [None]
  - SERRATIA INFECTION [None]
  - STAPHYLOCOCCAL INFECTION [None]
